FAERS Safety Report 5779032-7 (Version None)
Quarter: 2008Q2

REPORT INFORMATION
  Report Type: 
  Country: None (occurrence: None)
  Receive Date: 20080619
  Receipt Date: 20080618
  Transmission Date: 20081010
  Serious: Yes (Disabling)
  Sender: FDA-Public Use
  Company Number: AU-BRISTOL-MYERS SQUIBB COMPANY-14232375

PATIENT
  Age: 12 Year
  Sex: Male

DRUGS (6)
  1. LOMUSTINE [Suspect]
     Dosage: GIVEN 1 TIME. CAPSULE
     Route: 048
     Dates: start: 20050802
  2. CISPLATIN [Suspect]
     Dosage: INJECTION
     Route: 042
     Dates: start: 20050802
  3. PHENYTOIN SODIUM [Concomitant]
     Dosage: CAPSULE
     Route: 048
  4. LACTULOSE [Concomitant]
     Route: 048
  5. COLOXYL + SENNA [Concomitant]
     Dosage: TABLET 1 DOSAGE FORM = 2(UNITS NOT SPSCIFIED)
     Route: 048
  6. TRIMETHOPRIM + SULFAMETHOXAZOLE [Concomitant]
     Dosage: 1 DOSAGE FORM = 2(UNITS NOT SPECIFIED).
     Route: 048

REACTIONS (1)
  - DEAFNESS [None]
